FAERS Safety Report 22399336 (Version 1)
Quarter: 2023Q2

REPORT INFORMATION
  Report Type: Spontaneous
  Country: CN (occurrence: CN)
  Receive Date: 20230602
  Receipt Date: 20230602
  Transmission Date: 20230722
  Serious: Yes (Death, Other)
  Sender: FDA-Public Use
  Company Number: CN-SUN PHARMACEUTICAL INDUSTRIES LTD-2023R1-390095

PATIENT
  Age: 86 Year
  Sex: Male

DRUGS (3)
  1. CLOPIDOGREL [Suspect]
     Active Substance: CLOPIDOGREL BISULFATE
     Indication: Cerebral infarction
     Dosage: 75 MILLIGRAM, QD
     Route: 048
  2. HERBALS\PANAX NOTOGINSENG ROOT EXTRACT [Concomitant]
     Active Substance: HERBALS\PANAX NOTOGINSENG ROOT EXTRACT
     Indication: Cerebral infarction
     Dosage: 450 MILLIGRAM, DAILY
     Route: 042
  3. CATTLE ENCEPHALON GLYCOSIDE AND IGNOTIN [Concomitant]
     Indication: Cerebral infarction
     Dosage: 5 MILLIGRAM, DAILY
     Route: 042

REACTIONS (2)
  - Thrombotic thrombocytopenic purpura [Fatal]
  - Gingival bleeding [Not Recovered/Not Resolved]
